FAERS Safety Report 8184524-X (Version None)
Quarter: 2012Q1

REPORT INFORMATION
  Report Type: 
  Country: None (occurrence: None)
  Receive Date: 20120305
  Receipt Date: 20120221
  Transmission Date: 20120608
  Serious: Yes (Disabling)
  Sender: FDA-Public Use
  Company Number: GB-ALLERGAN-1202762US

PATIENT
  Age: 61 Year
  Sex: Female

DRUGS (2)
  1. TROSPIUM CHLORIDE [Suspect]
     Indication: MICTURITION DISORDER
     Route: 048
  2. AMANTADINE HCL [Suspect]
     Indication: PARKINSON'S DISEASE

REACTIONS (2)
  - PARKINSON'S DISEASE [None]
  - DRUG INTERACTION [None]
